FAERS Safety Report 10567948 (Version 1)
Quarter: 2014Q4

REPORT INFORMATION
  Report Type: Spontaneous
  Country: CA (occurrence: CA)
  Receive Date: 20141106
  Receipt Date: 20141106
  Transmission Date: 20150529
  Serious: Yes (Other)
  Sender: FDA-Public Use
  Company Number: CA-AMGEN-CANSP2014084665

PATIENT
  Age: 45 Year
  Sex: Female

DRUGS (1)
  1. PROLIA [Suspect]
     Active Substance: DENOSUMAB
     Indication: OSTEOPOROSIS POSTMENOPAUSAL
     Dosage: UNK
     Route: 065

REACTIONS (7)
  - Tibia fracture [Unknown]
  - Fall [Unknown]
  - Oesophageal disorder [Unknown]
  - Fibula fracture [Unknown]
  - Impaired healing [Unknown]
  - Mobility decreased [Unknown]
  - Myalgia [Unknown]
